FAERS Safety Report 13077241 (Version 2)
Quarter: 2017Q1

REPORT INFORMATION
  Report Type: Report from Study
  Country: US (occurrence: US)
  Receive Date: 20161230
  Receipt Date: 20170308
  Transmission Date: 20170428
  Serious: Yes (Other)
  Sender: FDA-Public Use
  Company Number: US-009507513-1612USA014024

PATIENT

DRUGS (3)
  1. REBETOL [Suspect]
     Active Substance: RIBAVIRIN
     Indication: HEPATITIS C
     Dosage: SOF/VEL ARM, 1000-1200 MG/DAY
     Route: 048
  2. VELPATASVIR [Suspect]
     Active Substance: VELPATASVIR
     Indication: HEPATITIS C
     Dosage: SOF/VEL ARM
  3. SOFOSBUVIR [Suspect]
     Active Substance: SOFOSBUVIR
     Indication: HEPATITIS C
     Dosage: SOF/VEL ARM

REACTIONS (1)
  - Adverse event [Unknown]
